FAERS Safety Report 17049492 (Version 1)
Quarter: 2019Q4

REPORT INFORMATION
  Report Type: Spontaneous
  Country: CZ (occurrence: CZ)
  Receive Date: 20191119
  Receipt Date: 20191119
  Transmission Date: 20200122
  Serious: Yes (Death, Other)
  Sender: FDA-Public Use
  Company Number: CZ-BRISTOL-MYERS SQUIBB COMPANY-BMS-2019-110807

PATIENT
  Age: 73 Year
  Sex: Male

DRUGS (1)
  1. NIVOLUMAB [Suspect]
     Active Substance: NIVOLUMAB
     Indication: LUNG ADENOCARCINOMA
     Dosage: 3 MILLIGRAM/KILOGRAM, A TOTAL OF 48 DOSES
     Route: 065
     Dates: start: 20160308, end: 20180309

REACTIONS (1)
  - Death [Fatal]

NARRATIVE: CASE EVENT DATE: 201907
